FAERS Safety Report 6313119-5 (Version None)
Quarter: 2009Q3

REPORT INFORMATION
  Report Type: 
  Country: None (occurrence: None)
  Receive Date: 20090818
  Receipt Date: 20090620
  Transmission Date: 20100115
  Serious: Yes (Other)
  Sender: FDA-Public Use
  Company Number: CA-PFIZER INC-2009255514

PATIENT
  Age: 70 Year

DRUGS (1)
  1. SUNITINIB MALATE [Suspect]
     Indication: ENDOMETRIAL CANCER METASTATIC
     Dosage: 50 MG, 1X/DAY
     Route: 048
     Dates: start: 20090506

REACTIONS (2)
  - HYPERHIDROSIS [None]
  - MUSCULAR WEAKNESS [None]
